FAERS Safety Report 19661026 (Version 1)
Quarter: 2021Q3

REPORT INFORMATION
  Report Type: Spontaneous
  Country: US (occurrence: US)
  Receive Date: 20210805
  Receipt Date: 20210805
  Transmission Date: 20211014
  Serious: No
  Sender: FDA-Public Use
  Company Number: None

PATIENT

DRUGS (2)
  1. ENFAMIL POLY?VI?SOL [Suspect]
     Active Substance: VITAMINS
  2. ENFAMIL POLY?VI?SOL WITH IRON [Suspect]
     Active Substance: IRON\VITAMINS

REACTIONS (1)
  - Product packaging confusion [None]
